FAERS Safety Report 25960283 (Version 2)
Quarter: 2025Q4

REPORT INFORMATION
  Report Type: Spontaneous
  Country: EU (occurrence: EU)
  Receive Date: 20251026
  Receipt Date: 20251115
  Transmission Date: 20260118
  Serious: Yes (Life-Threatening, Hospitalization, Other)
  Sender: JOHNSON AND JOHNSON
  Company Number: EU-JNJFOC-20251030750

PATIENT
  Age: 34 Year
  Sex: Male
  Weight: 70 kg

DRUGS (3)
  1. STELARA [Suspect]
     Active Substance: USTEKINUMAB
     Indication: Crohn^s disease
     Dosage: 3 DOSES
     Route: 040
     Dates: start: 202509
  2. STELARA [Suspect]
     Active Substance: USTEKINUMAB
     Indication: Crohn^s disease
     Route: 058
     Dates: start: 202511
  3. HYDROCORTISONE HF [Concomitant]
     Indication: Product used for unknown indication

REACTIONS (3)
  - Acute myocardial infarction [Recovering/Resolving]
  - Heart valve incompetence [Unknown]
  - Essential hypertension [Unknown]

NARRATIVE: CASE EVENT DATE: 20251008
